FAERS Safety Report 9235779 (Version 1)
Quarter: 2013Q2

REPORT INFORMATION
  Report Type: Spontaneous
  Country: US (occurrence: None)
  Receive Date: 20130416
  Receipt Date: 20130416
  Transmission Date: 20140414
  Serious: Yes (Hospitalization)
  Sender: FDA-Public Use
  Company Number: None

PATIENT
  Age: 79 Year
  Sex: Male
  Weight: 83.3 kg

DRUGS (7)
  1. FONDAPARINUX [Suspect]
     Indication: ANTICOAGULANT THERAPY
     Dates: start: 20130328, end: 20130331
  2. WARFARIN [Concomitant]
  3. VITAMIN K [Concomitant]
  4. MEROPENEM [Concomitant]
  5. LEVOFLOXACIN [Concomitant]
  6. FUROSEMIDE [Concomitant]
  7. ERTAPENEM [Concomitant]

REACTIONS (2)
  - Abdominal wall haematoma [None]
  - Contusion [None]
